FAERS Safety Report 5643380-1 (Version None)
Quarter: 2008Q1

REPORT INFORMATION
  Report Type: 
  Country: None (occurrence: None)
  Receive Date: 20080131
  Receipt Date: 20071008
  Transmission Date: 20080703
  Serious: Yes (Other)
  Sender: FDA-Public Use
  Company Number: 163-21880-07100458

PATIENT
  Age: 75 Year
  Sex: Female

DRUGS (9)
  1. REVLIMID [Suspect]
     Indication: MYELODYSPLASTIC SYNDROME
     Dosage: 5 MG, QD X28 DAYS, ORAL ; 5 MG, QD X21 DAYS ON 7 DAYS OFF, ORAL
     Route: 048
     Dates: start: 20070816
  2. REVLIMID [Suspect]
     Indication: MYELODYSPLASTIC SYNDROME
     Dosage: 5 MG, QD X28 DAYS, ORAL ; 5 MG, QD X21 DAYS ON 7 DAYS OFF, ORAL
     Route: 048
     Dates: start: 20070914
  3. PROCRIT [Concomitant]
  4. VICODIN [Concomitant]
  5. LEVOTHROID [Concomitant]
  6. GEMFIBROZIL [Concomitant]
  7. LIPITOR [Concomitant]
  8. VERAPAMIL [Concomitant]
  9. MAXZIDE (MAXZIDE) [Concomitant]

REACTIONS (3)
  - ANAEMIA [None]
  - DIZZINESS [None]
  - FATIGUE [None]
